FAERS Safety Report 7299265-0 (Version None)
Quarter: 2011Q1

REPORT INFORMATION
  Report Type: 
  Country: None (occurrence: None)
  Receive Date: 20110217
  Receipt Date: 20110208
  Transmission Date: 20110831
  Serious: Yes (Hospitalization, Other)
  Sender: FDA-Public Use
  Company Number: US-ELI_LILLY_AND_COMPANY-US201102002473

PATIENT
  Age: 45 Year
  Sex: Female

DRUGS (2)
  1. EFFIENT [Suspect]
     Dosage: 60 MG, OTHER
  2. ASPIRIN [Concomitant]

REACTIONS (3)
  - TREATMENT NONCOMPLIANCE [None]
  - THROMBOSIS IN DEVICE [None]
  - DRUG DOSE OMISSION [None]
